FAERS Safety Report 7586079-7 (Version None)
Quarter: 2011Q2

REPORT INFORMATION
  Report Type: 
  Country: None (occurrence: None)
  Receive Date: 20110603
  Receipt Date: 20110505
  Transmission Date: 20111010
  Serious: No
  Sender: FDA-Public Use
  Company Number: 2011SP020550

PATIENT
  Age: 24 Year
  Sex: Female

DRUGS (5)
  1. STAVZOR [Concomitant]
  2. SAPHRIS [Suspect]
     Indication: BIPOLAR DISORDER
     Dosage: 10 MG;BID;SL
     Route: 060
     Dates: start: 20110301
  3. CONSERTA [Concomitant]
  4. INTUNIV [Concomitant]
  5. LEXAPRO [Concomitant]

REACTIONS (1)
  - HYPOAESTHESIA ORAL [None]
